FAERS Safety Report 10064319 (Version 1)
Quarter: 2014Q2

REPORT INFORMATION
  Report Type: Spontaneous
  Country: FR (occurrence: None)
  Receive Date: 20140404
  Receipt Date: 20140404
  Transmission Date: 20141212
  Serious: Yes (Congenital Anomaly)
  Sender: FDA-Public Use
  Company Number: B0979793C

PATIENT
  Sex: Female

DRUGS (1)
  1. PAROXETINE HYDROCHLORIDE [Suspect]
     Indication: DEPRESSION
     Dosage: 20MG ALTERNATE DAYS TRANSPLACE
     Dates: start: 201210, end: 20130626

REACTIONS (10)
  - Cleft palate [None]
  - Twin pregnancy [None]
  - Retrognathia [None]
  - Glossoptosis [None]
  - Pierre Robin syndrome [None]
  - Hemivertebra [None]
  - Premature baby [None]
  - Maternal drugs affecting foetus [None]
  - Eating disorder [None]
  - Oxygen saturation decreased [None]
